FAERS Safety Report 25946192 (Version 1)
Quarter: 2025Q4

REPORT INFORMATION
  Report Type: Report from Study
  Country: CA (occurrence: CA)
  Receive Date: 20251022
  Receipt Date: 20251022
  Transmission Date: 20260118
  Serious: Yes (Other)
  Sender: ABBVIE
  Company Number: CA-ABBVIE-6509508

PATIENT
  Sex: Male
  Weight: 80 kg

DRUGS (1)
  1. SKYRIZI [Suspect]
     Active Substance: RISANKIZUMAB-RZAA
     Indication: Crohn^s disease
     Route: 058

REACTIONS (6)
  - Anal cyst [Unknown]
  - Papule [Unknown]
  - Intestinal mass [Unknown]
  - Abdominal discomfort [Unknown]
  - Flatulence [Unknown]
  - Weight increased [Unknown]
